FAERS Safety Report 22289566 (Version 1)
Quarter: 2023Q2

REPORT INFORMATION
  Report Type: Spontaneous
  Country: GB (occurrence: GB)
  Receive Date: 20230505
  Receipt Date: 20230505
  Transmission Date: 20230722
  Serious: Yes (Other)
  Sender: FDA-Public Use
  Company Number: GB-AMERICAN REGENT INC-2023001067

PATIENT
  Age: 81 Year
  Sex: Female

DRUGS (1)
  1. FERINJECT [Suspect]
     Active Substance: FERRIC CARBOXYMALTOSE
     Indication: Serum ferritin abnormal
     Dosage: 1000 MILLIGRAM
     Dates: start: 20230425, end: 20230425

REACTIONS (3)
  - Skin discolouration [Recovering/Resolving]
  - Peripheral swelling [Recovering/Resolving]
  - Contusion [Unknown]

NARRATIVE: CASE EVENT DATE: 20230425
